FAERS Safety Report 10421543 (Version 2)
Quarter: 2014Q4

REPORT INFORMATION
  Report Type: Spontaneous
  Country: US (occurrence: US)
  Receive Date: 20140901
  Receipt Date: 20141027
  Transmission Date: 20150528
  Serious: No
  Sender: FDA-Public Use
  Company Number: US-BIOGENIDEC-2014BI086723

PATIENT
  Sex: Female

DRUGS (1)
  1. TYSABRI [Suspect]
     Active Substance: NATALIZUMAB
     Indication: MULTIPLE SCLEROSIS
     Route: 042
     Dates: start: 20130725, end: 20140717

REACTIONS (5)
  - General symptom [Unknown]
  - Feeling abnormal [Recovered/Resolved]
  - Balance disorder [Unknown]
  - Adverse drug reaction [Recovered/Resolved]
  - Weight decreased [Unknown]
